FAERS Safety Report 19892846 (Version 2)
Quarter: 2021Q4

REPORT INFORMATION
  Report Type: Other
  Country: GR (occurrence: GR)
  Receive Date: 20210929
  Receipt Date: 20211004
  Transmission Date: 20220303
  Serious: No
  Sender: FDA-Public Use
  Company Number: GR-ROCHE-2921472

PATIENT
  Age: 54 Year
  Sex: Female

DRUGS (5)
  1. TRASTUZUMAB [Suspect]
     Active Substance: TRASTUZUMAB
     Indication: HER2 positive breast cancer
     Route: 065
  2. LETROZOLE [Concomitant]
     Active Substance: LETROZOLE
  3. EPIRUBICIN [Concomitant]
     Active Substance: EPIRUBICIN
  4. CYCLOPHOSPHAMIDE [Concomitant]
     Active Substance: CYCLOPHOSPHAMIDE
  5. DOCETAXEL [Concomitant]
     Active Substance: DOCETAXEL

REACTIONS (1)
  - Dermatomyositis [Recovered/Resolved]
